FAERS Safety Report 5951761-1 (Version None)
Quarter: 2008Q4

REPORT INFORMATION
  Report Type: 
  Country: None (occurrence: None)
  Receive Date: 20081113
  Receipt Date: 20081104
  Transmission Date: 20090506
  Serious: Yes (Hospitalization)
  Sender: FDA-Public Use
  Company Number: SE-ELI_LILLY_AND_COMPANY-SE200811000859

PATIENT

DRUGS (4)
  1. FORTEO [Suspect]
     Indication: OSTEOPOROSIS
     Dosage: 20 UG, UNKNOWN
     Route: 065
     Dates: start: 20080214
  2. EUTHYROX [Concomitant]
     Indication: HYPOTHYROIDISM
     Dosage: 125 UG, DAILY (1/D)
     Route: 065
  3. ERGOCALCIFEROL [Concomitant]
     Indication: HYPOVITAMINOSIS
     Dosage: 245 UG, WEEKLY (1/W)
     Route: 065
  4. BEHEPAN [Concomitant]
     Indication: ANAEMIA VITAMIN B12 DEFICIENCY
     Dosage: 1 MG, DAILY (1/D)
     Route: 065

REACTIONS (1)
  - ADENOCARCINOMA [None]
